FAERS Safety Report 19058173 (Version 1)
Quarter: 2021Q1

REPORT INFORMATION
  Report Type: Spontaneous
  Country: IL (occurrence: IL)
  Receive Date: 20210324
  Receipt Date: 20210324
  Transmission Date: 20210420
  Serious: Yes (Other)
  Sender: FDA-Public Use
  Company Number: IL-009507513-2103ISR004951

PATIENT
  Age: 21 Year
  Sex: Male
  Weight: 76 kg

DRUGS (15)
  1. SULFAMETHOXAZOLE (+) TRIMETHOPRIM [Concomitant]
     Active Substance: SULFAMETHOXAZOLE\TRIMETHOPRIM
     Dosage: 960 MG TWICE WEEKLY
  2. RIBAVIRIN. [Suspect]
     Active Substance: RIBAVIRIN
     Indication: RESPIRATORY SYNCYTIAL VIRUS INFECTION
     Dosage: 600 MG IN 3 DIVIDED DOSES DAILY, WAS DISCONTINUED AFTER THE SIXTH DOSE
     Route: 048
  3. PREDNISONE. [Concomitant]
     Active Substance: PREDNISONE
     Dosage: 5 MG/D
  4. RAMIPRIL. [Concomitant]
     Active Substance: RAMIPRIL
     Dosage: 5 MG/D
  5. ESOMEPRAZOLE. [Concomitant]
     Active Substance: ESOMEPRAZOLE MAGNESIUM
     Dosage: 40 MG/D
  6. RIBAVIRIN. [Suspect]
     Active Substance: RIBAVIRIN
     Indication: PNEUMONIA RESPIRATORY SYNCYTIAL VIRAL
  7. URSODIOL. [Concomitant]
     Active Substance: URSODIOL
     Dosage: 900 MG/D
  8. LEVOFLOXACIN. [Concomitant]
     Active Substance: LEVOFLOXACIN
     Indication: RESPIRATORY SYNCYTIAL VIRUS INFECTION
     Dosage: 750 MG ONCE DAILY
     Route: 042
  9. CYCLOSPORINE. [Concomitant]
     Active Substance: CYCLOSPORINE
     Dosage: 25 MG/D
  10. CALCIUM CARBONATE. [Concomitant]
     Active Substance: CALCIUM CARBONATE
     Dosage: 600 MG/D
  11. VITAMIN D (UNSPECIFIED) [Concomitant]
     Active Substance: VITAMIN D NOS
     Dosage: 800 UNITS/D
  12. BISOPROLOL [Concomitant]
     Active Substance: BISOPROLOL
     Dosage: 10 MG/D
  13. ACYCLOVIR. [Concomitant]
     Active Substance: ACYCLOVIR
     Dosage: 1200 MG/D
  14. LEVOFLOXACIN. [Concomitant]
     Active Substance: LEVOFLOXACIN
     Indication: PNEUMONIA RESPIRATORY SYNCYTIAL VIRAL
  15. VORICONAZOLE. [Concomitant]
     Active Substance: VORICONAZOLE
     Dosage: 600 MG/D

REACTIONS (3)
  - Acute kidney injury [Recovered/Resolved]
  - Hyperuricaemia [Recovered/Resolved]
  - Product use in unapproved indication [Unknown]
